FAERS Safety Report 5909395-0 (Version None)
Quarter: 2008Q4

REPORT INFORMATION
  Report Type: 
  Country: None (occurrence: None)
  Receive Date: 20081006
  Receipt Date: 20081001
  Transmission Date: 20090506
  Serious: Yes (Hospitalization)
  Sender: FDA-Public Use
  Company Number: JP-B.I. PHARMACEUTICALS,INC./RIDGEFIELD-2008-BP-15131NB

PATIENT
  Age: 49 Year
  Sex: Female

DRUGS (1)
  1. MOBIC [Suspect]
     Indication: ARTHRITIS
     Dosage: 10MG
     Route: 048
     Dates: start: 20050201

REACTIONS (1)
  - COLITIS COLLAGENOUS [None]
